FAERS Safety Report 5775421-5 (Version None)
Quarter: 2008Q2

REPORT INFORMATION
  Report Type: 
  Country: None (occurrence: None)
  Receive Date: 20080613
  Receipt Date: 20080605
  Transmission Date: 20081010
  Serious: Yes (Death)
  Sender: FDA-Public Use
  Company Number: 163-21880-08060367

PATIENT
  Age: 80 Year
  Sex: Male

DRUGS (11)
  1. REVLIMID [Suspect]
     Indication: MYELODYSPLASTIC SYNDROME
     Dosage: 10 MG, 1 IN 1 D, ORAL
     Route: 048
     Dates: start: 20070518, end: 20080514
  2. ASPIRIN [Concomitant]
  3. FLONASE NASAL (FLUTICASONE PROPIONATE_ [Concomitant]
  4. LISINOPRIL [Concomitant]
  5. NEXIUM (TAMSULOSIN HYDROCHLORIDE) [Concomitant]
  6. COLLACE (DOCUSATE SODIUM) [Concomitant]
  7. HUMULIN R [Concomitant]
  8. HUMULIN R [Concomitant]
  9. LOPRESSOR (METHOPROL TARTRATE) [Concomitant]
  10. COMPAZINE (PROCHLORPERANZINE EDISYLATE) [Concomitant]
  11. INOSITOL (INOSITOL) [Concomitant]

REACTIONS (3)
  - DISEASE PROGRESSION [None]
  - DRUG INEFFECTIVE [None]
  - MYELODYSPLASTIC SYNDROME [None]
